FAERS Safety Report 17720988 (Version 4)
Quarter: 2021Q1

REPORT INFORMATION
  Report Type: Other
  Country: GB (occurrence: GB)
  Receive Date: 20200428
  Receipt Date: 20210311
  Transmission Date: 20210419
  Serious: Yes (Death, Hospitalization)
  Sender: FDA-Public Use
  Company Number: GB-CELLTRION INC.-2020GB021903

PATIENT

DRUGS (12)
  1. MACROGOL 3350 [Concomitant]
     Active Substance: POLYETHYLENE GLYCOL 3350
     Indication: CONSTIPATION
     Dosage: UNK
     Dates: start: 20200316, end: 20200407
  2. OMEPRAZOLE. [Concomitant]
     Active Substance: OMEPRAZOLE
     Indication: DYSPEPSIA
     Dosage: UNK
     Dates: start: 20200313, end: 20200407
  3. DOCUSATE [Concomitant]
     Active Substance: DOCUSATE
     Indication: CONSTIPATION
     Dosage: UNK
     Dates: start: 20200316, end: 20200407
  4. BECLOMETASONE [Concomitant]
     Active Substance: BECLOMETHASONE DIPROPIONATE
     Indication: WHEEZING
     Dosage: UNK
     Dates: start: 20200129, end: 20200407
  5. METFORMIN [Concomitant]
     Active Substance: METFORMIN HYDROCHLORIDE
     Indication: DIABETES MELLITUS
     Dosage: UNK
     Dates: start: 20200316, end: 20200407
  6. SALBUTAMOL [Concomitant]
     Active Substance: ALBUTEROL
     Indication: DYSPNOEA
     Dosage: UNK
     Dates: start: 20200213, end: 20200407
  7. FERROUS SULFATE. [Concomitant]
     Active Substance: FERROUS SULFATE
     Indication: IRON DEFICIENCY
     Dosage: UNK
     Dates: start: 20200129, end: 20200407
  8. RITUXIMAB (UNKNOWN) [Suspect]
     Active Substance: RITUXIMAB
     Indication: B-CELL LYMPHOMA
     Dosage: 700 MG
     Route: 042
     Dates: start: 20200312, end: 20200313
  9. NICOTINE. [Concomitant]
     Active Substance: NICOTINE
     Indication: SMOKING CESSATION THERAPY
     Dosage: PHARMACEUTICAL DOSE FORM: 250
     Dates: start: 20200316, end: 20200407
  10. FORMOTEROL [Concomitant]
     Active Substance: FORMOTEROL
     Indication: WHEEZING
     Dosage: UNK
     Dates: start: 20200129, end: 20200407
  11. BENDAMUSTINE [Suspect]
     Active Substance: BENDAMUSTINE
     Indication: B-CELL LYMPHOMA
     Dosage: 175 MG
     Route: 042
     Dates: start: 20200312, end: 20200313
  12. FUROSEMIDE. [Concomitant]
     Active Substance: FUROSEMIDE
     Indication: FLUID OVERLOAD
     Dosage: UNK
     Dates: start: 20200316, end: 20200407

REACTIONS (7)
  - Pleural effusion [Fatal]
  - Dyspnoea [Fatal]
  - Coronavirus infection [Fatal]
  - Pneumonia [Fatal]
  - Chills [Fatal]
  - Overdose [Unknown]
  - Hypoxia [Fatal]

NARRATIVE: CASE EVENT DATE: 20200403
